FAERS Safety Report 5011177-1 (Version None)
Quarter: 2006Q2

REPORT INFORMATION
  Report Type: 
  Country: None (occurrence: None)
  Receive Date: 20060523
  Receipt Date: 20060523
  Transmission Date: 20061013
  Serious: No
  Sender: FDA-Public Use
  Company Number: None

PATIENT
  Age: 76 Year
  Sex: Female

DRUGS (5)
  1. PROMETHAZINE [Suspect]
     Indication: CATHETER PLACEMENT
  2. OXYCODONE HCL [Suspect]
  3. MIDAZOLAM HCL [Suspect]
  4. DIAZEPAM [Suspect]
  5. HYDROMORPHONE HCL [Suspect]

REACTIONS (4)
  - ASTHENIA [None]
  - CHEST PAIN [None]
  - LETHARGY [None]
  - REFUSAL OF TREATMENT BY PATIENT [None]
